FAERS Safety Report 24846168 (Version 1)
Quarter: 2025Q1

REPORT INFORMATION
  Report Type: Spontaneous
  Country: US (occurrence: None)
  Receive Date: 20250115
  Receipt Date: 20250115
  Transmission Date: 20250408
  Serious: Yes (Hospitalization)
  Sender: FDA-CTU
  Company Number: None

PATIENT
  Age: 56 Year
  Sex: Female

DRUGS (22)
  1. ENVARSUS XR [Suspect]
     Active Substance: TACROLIMUS
     Indication: Prophylaxis against transplant rejection
     Dosage: FREQUENCY : DAILY;?
     Route: 048
     Dates: start: 20230729
  2. EVEROLIMUS [Suspect]
     Active Substance: EVEROLIMUS
     Indication: Prophylaxis against transplant rejection
     Dosage: FREQUENCY : TWICE A DAY;?
     Route: 048
     Dates: start: 20230223
  3. Everolimus 0.25 mg [Concomitant]
     Dates: start: 20240223
  4. LORATADINE [Concomitant]
     Active Substance: LORATADINE
     Dates: start: 20240419
  5. Amlopidine 5mg [Concomitant]
     Dates: start: 20230623
  6. Aspirin 81mg EC [Concomitant]
     Dates: start: 20221012
  7. BASAGLAR [Concomitant]
     Active Substance: INSULIN GLARGINE
     Dates: start: 20231111
  8. CALCITRIOL [Concomitant]
     Active Substance: CALCITRIOL
     Dates: start: 20230715
  9. CARVEDILOL [Concomitant]
     Active Substance: CARVEDILOL
     Dates: start: 20221012
  10. DOXAZOSIN [Concomitant]
     Active Substance: DOXAZOSIN MESYLATE
     Dates: start: 20240321
  11. FAMOTIDINE [Concomitant]
     Active Substance: FAMOTIDINE
     Dates: start: 20220524
  12. Ferrous sulfate 325 mg [Concomitant]
     Dates: start: 20230811
  13. INSULIN LISPRO [Concomitant]
     Active Substance: INSULIN LISPRO
     Dates: start: 20240406
  14. KETOCONAZOLE [Concomitant]
     Active Substance: KETOCONAZOLE
     Dates: start: 20230729
  15. PREDNISONE [Concomitant]
     Active Substance: PREDNISONE
     Dates: start: 20230729
  16. ASCORBIC ACID\BIOTIN\CALCIUM PANTOTHENATE\CYANOCOBALAMIN\FOLIC ACID\NI [Concomitant]
     Active Substance: ASCORBIC ACID\BIOTIN\CALCIUM PANTOTHENATE\CYANOCOBALAMIN\FOLIC ACID\NIACINAMIDE\PYRIDOXINE HYDROCHLO
     Dates: start: 20230515
  17. ROSUVASTATIN [Concomitant]
     Active Substance: ROSUVASTATIN
     Dates: start: 20240511
  18. Sodium bicarbonate 10 g [Concomitant]
     Dates: start: 20230516
  19. SPIRONOLACTONE [Concomitant]
     Active Substance: SPIRONOLACTONE
     Dates: start: 20240321
  20. Torsemide 20 mg [Concomitant]
     Dates: start: 20230615
  21. VITAMIN C [Concomitant]
     Active Substance: ASCORBIC ACID
     Dates: start: 20230120
  22. Vitamin E 180mg [Concomitant]
     Dates: start: 20230906

REACTIONS (2)
  - Full blood count decreased [None]
  - Renal disorder [None]

NARRATIVE: CASE EVENT DATE: 20241212
